FAERS Safety Report 12369200 (Version 1)
Quarter: 2016Q2

REPORT INFORMATION
  Report Type: Report from Study
  Country: CO (occurrence: CO)
  Receive Date: 20160513
  Receipt Date: 20160513
  Transmission Date: 20160815
  Serious: Yes (Death, Hospitalization)
  Sender: FDA-Public Use
  Company Number: CO-ABBVIE-16K-036-1627465-00

PATIENT
  Age: 62 Year
  Sex: Female
  Weight: 60 kg

DRUGS (1)
  1. HUMIRA [Suspect]
     Active Substance: ADALIMUMAB
     Indication: ANKYLOSING SPONDYLITIS
     Route: 058
     Dates: start: 20150212, end: 20160503

REACTIONS (3)
  - Fall [Fatal]
  - Quadriplegia [Fatal]
  - Cervical vertebral fracture [Fatal]

NARRATIVE: CASE EVENT DATE: 20160430
